FAERS Safety Report 17350894 (Version 1)
Quarter: 2020Q1

REPORT INFORMATION
  Report Type: Spontaneous
  Country: BR (occurrence: BR)
  Receive Date: 20200130
  Receipt Date: 20200130
  Transmission Date: 20200409
  Serious: Yes (Death, Hospitalization, Other)
  Sender: FDA-Public Use
  Company Number: BR-009507513-2001BRA009614

PATIENT
  Sex: Female

DRUGS (3)
  1. TEMODAL [Suspect]
     Active Substance: TEMOZOLOMIDE
     Indication: GLIOBLASTOMA
     Dosage: 3 TABLET, QD
     Route: 048
     Dates: start: 20190906, end: 201910
  2. TEMODAL [Suspect]
     Active Substance: TEMOZOLOMIDE
     Indication: GLIOBLASTOMA
     Dosage: 1 TABLET, QD
     Route: 048
     Dates: start: 20190906, end: 201910
  3. TEMODAL [Suspect]
     Active Substance: TEMOZOLOMIDE
     Indication: GLIOBLASTOMA
     Dosage: 1 TABLET, QD
     Route: 048
     Dates: start: 20190906, end: 201910

REACTIONS (2)
  - Seizure [Unknown]
  - Adverse event [Fatal]

NARRATIVE: CASE EVENT DATE: 20200101
